FAERS Safety Report 9331573 (Version 2)
Quarter: 2014Q1

REPORT INFORMATION
  Report Type: Report from Study
  Country: DZ (occurrence: DZ)
  Receive Date: 20130605
  Receipt Date: 20140103
  Transmission Date: 20141002
  Serious: Yes (Death, Other)
  Sender: FDA-Public Use
  Company Number: DZ-ROCHE-1231478

PATIENT
  Sex: Female

DRUGS (13)
  1. TRASTUZUMAB [Suspect]
     Indication: BREAST CANCER
     Dosage: LOADING DOSE : CHARGE DOSE OF 8MG/ KG,  MAINTENANCE DOSE OF 6MG/ KG
     Route: 042
     Dates: start: 20100124, end: 20100429
  2. CAPECITABINE [Suspect]
     Indication: PRODUCT USED FOR UNKNOWN INDICATION
     Route: 065
  3. CAPECITABINE [Suspect]
     Route: 065
  4. LAPATINIB [Suspect]
     Indication: PRODUCT USED FOR UNKNOWN INDICATION
     Route: 065
  5. LAPATINIB [Suspect]
     Route: 065
  6. PACLITAXEL [Suspect]
     Indication: PRODUCT USED FOR UNKNOWN INDICATION
     Route: 065
  7. PACLITAXEL [Suspect]
     Route: 065
  8. VINORELBINE [Suspect]
     Indication: PRODUCT USED FOR UNKNOWN INDICATION
     Route: 065
  9. VINORELBINE [Suspect]
     Route: 065
  10. TAXOTERE [Suspect]
     Indication: PRODUCT USED FOR UNKNOWN INDICATION
     Dosage: 138 MG PER CURE
     Route: 065
     Dates: start: 20100124, end: 20100322
  11. FLAGYL [Concomitant]
     Indication: DIARRHOEA
  12. AZANTAC [Concomitant]
  13. ZOPHREN [Concomitant]

REACTIONS (4)
  - Respiratory distress [Fatal]
  - Dyspnoea at rest [Fatal]
  - Disease progression [Fatal]
  - Ejection fraction decreased [Unknown]
